FAERS Safety Report 8611242-3 (Version None)
Quarter: 2012Q3

REPORT INFORMATION
  Report Type: 
  Country: None (occurrence: None)
  Receive Date: 20120822
  Receipt Date: 20120814
  Transmission Date: 20120928
  Serious: Yes (Hospitalization, Other)
  Sender: FDA-Public Use
  Company Number: US-ASTELLAS-2012US006488

PATIENT
  Sex: Male
  Weight: 73 kg

DRUGS (1)
  1. ERLOTINIB HYDROCHLORIDE [Suspect]
     Indication: NON-SMALL CELL LUNG CANCER
     Dosage: 150 MG, UID/QD
     Route: 048
     Dates: start: 20120501, end: 20120711

REACTIONS (7)
  - PARTIAL SEIZURES [None]
  - BLOOD MAGNESIUM DECREASED [None]
  - GOUT [None]
  - DRY EYE [None]
  - RASH GENERALISED [None]
  - NEOPLASM MALIGNANT [None]
  - BLOOD URIC ACID INCREASED [None]
